FAERS Safety Report 19447713 (Version 1)
Quarter: 2021Q2

REPORT INFORMATION
  Report Type: Spontaneous
  Country: US (occurrence: US)
  Receive Date: 20210622
  Receipt Date: 20210622
  Transmission Date: 20210717
  Serious: No
  Sender: FDA-Public Use
  Company Number: None

PATIENT
  Age: 83 Year
  Sex: Female
  Weight: 76.5 kg

DRUGS (18)
  1. LEGATRIN [Concomitant]
     Active Substance: ACETAMINOPHEN\DIPHENHYDRAMINE
  2. POTASSIUM CHLORIDE ER [Concomitant]
     Active Substance: POTASSIUM CHLORIDE
  3. BIOTIN [Concomitant]
     Active Substance: BIOTIN
  4. STOOL SOFTENER (DOCUSATE) [Concomitant]
     Active Substance: DOCUSATE
  5. TURMERIC [Concomitant]
     Active Substance: HERBALS\TURMERIC
  6. RESVERATROL [Concomitant]
     Active Substance: DIETARY SUPPLEMENT\RESVERATROL
  7. TORSEMIDE. [Concomitant]
     Active Substance: TORSEMIDE
  8. LEVOTHYROXINE SODIUM. [Concomitant]
     Active Substance: LEVOTHYROXINE SODIUM
  9. TRAZODONE [Concomitant]
     Active Substance: TRAZODONE HYDROCHLORIDE
  10. WARFARIN SODIUM. [Concomitant]
     Active Substance: WARFARIN SODIUM
  11. CALCIUM 300 [Concomitant]
  12. ALENDRONATE SODIUM. [Concomitant]
     Active Substance: ALENDRONATE SODIUM
  13. GABAPENTIN. [Concomitant]
     Active Substance: GABAPENTIN
  14. IMATINIB MESYLATE. [Suspect]
     Active Substance: IMATINIB MESYLATE
     Indication: CHRONIC LYMPHOCYTIC LEUKAEMIA
     Route: 048
     Dates: start: 20200807
  15. FISH OIL OMEGA?3 [Concomitant]
  16. GEMFIBROZIL. [Concomitant]
     Active Substance: GEMFIBROZIL
  17. MEMANTINE HCL [Concomitant]
     Active Substance: MEMANTINE
  18. PRENATAL DHA [Concomitant]
     Active Substance: DOCONEXENT\MINERALS\VITAMINS

REACTIONS (1)
  - White blood cell count decreased [None]

NARRATIVE: CASE EVENT DATE: 20210622
